FAERS Safety Report 17846690 (Version 2)
Quarter: 2020Q2

REPORT INFORMATION
  Report Type: Spontaneous
  Country: ES (occurrence: NL)
  Receive Date: 20200601
  Receipt Date: 20200604
  Transmission Date: 20200714
  Serious: Yes (Other)
  Sender: FDA-Public Use
  Company Number: NVSC2020ES091817

PATIENT
  Age: 76 Year
  Sex: Female

DRUGS (8)
  1. PREDNISOLONE. [Concomitant]
     Active Substance: PREDNISOLONE
     Indication: PRODUCT USED FOR UNKNOWN INDICATION
     Dosage: THRICE DAILY, ONE DROP FOUR TIMES DAILY AND TO TAPER IT SLOWLY
     Route: 065
  2. MOXIFLOXACIN. [Suspect]
     Active Substance: MOXIFLOXACIN
     Indication: PSEUDOPHAKIC GLAUCOMA
     Dosage: 0.1 ML OF 5 MG/ML
     Route: 031
     Dates: start: 201611, end: 201611
  3. MOXIFLOXACIN. [Suspect]
     Active Substance: MOXIFLOXACIN
     Indication: ANTIBIOTIC PROPHYLAXIS
     Dosage: 1 GTT, QID
     Route: 047
     Dates: start: 201611, end: 2016
  4. BRIMONIDINE [Suspect]
     Active Substance: BRIMONIDINE TARTRATE
     Indication: GLAUCOMA
     Dosage: UNK
     Route: 065
  5. MITOMYCIN. [Suspect]
     Active Substance: MITOMYCIN
     Dosage: UNK FOR 1 MIN
     Route: 057
     Dates: start: 201611, end: 201611
  6. MITOMYCIN. [Suspect]
     Active Substance: MITOMYCIN
     Indication: PSEUDOPHAKIC GLAUCOMA
     Dosage: UNK, FOR 40 S
     Route: 057
  7. TIMOLOL. [Suspect]
     Active Substance: TIMOLOL
     Indication: GLAUCOMA
     Dosage: UNK
     Route: 065
  8. DICLOFENAC [Concomitant]
     Active Substance: DICLOFENAC
     Indication: PRODUCT USED FOR UNKNOWN INDICATION
     Dosage: UNK, TID
     Route: 065

REACTIONS (14)
  - Pigment dispersion syndrome [Not Recovered/Not Resolved]
  - Iris transillumination defect [Not Recovered/Not Resolved]
  - Corneal defect [Recovered/Resolved]
  - Toxicity to various agents [Not Recovered/Not Resolved]
  - Scleral pigmentation [Recovered/Resolved]
  - Corneal oedema [Recovered/Resolved]
  - Hypersensitivity [Unknown]
  - Visual acuity reduced [Not Recovered/Not Resolved]
  - Mydriasis [Not Recovered/Not Resolved]
  - Anterior chamber pigmentation [Recovered/Resolved]
  - Intraocular pressure increased [Recovered/Resolved]
  - Corneal disorder [Recovered/Resolved]
  - Product use in unapproved indication [Recovered/Resolved]
  - Intentional product use issue [Recovered/Resolved]

NARRATIVE: CASE EVENT DATE: 2016
